FAERS Safety Report 23310750 (Version 1)
Quarter: 2023Q4

REPORT INFORMATION
  Report Type: Spontaneous
  Country: CN (occurrence: CN)
  Receive Date: 20231218
  Receipt Date: 20231218
  Transmission Date: 20240109
  Serious: Yes (Hospitalization, Other)
  Sender: FDA-Public Use
  Company Number: None

PATIENT
  Age: 45 Year
  Sex: Female
  Weight: 50 kg

DRUGS (4)
  1. CYCLOPHOSPHAMIDE [Suspect]
     Active Substance: CYCLOPHOSPHAMIDE
     Indication: Breast cancer female
     Dosage: 1 G, ONE TIME IN ONE DAY, DILUTED WITH 0.9% SODIUM CHLORIDE 100 ML, SECOND ADJUVANT CHEMOTHERAPY
     Route: 041
     Dates: start: 20231129, end: 20231129
  2. SODIUM CHLORIDE [Suspect]
     Active Substance: SODIUM CHLORIDE
     Indication: Medication dilution
     Dosage: 0.9% 100 ML, ONE TIME IN ONE DAY, USED TO DILUTE CYCLOPHOSPHAMIDE 1 G
     Route: 041
     Dates: start: 20231129, end: 20231129
  3. SODIUM CHLORIDE [Suspect]
     Active Substance: SODIUM CHLORIDE
     Dosage: 0.9% 100 ML, ONE TIME IN ONE DAY, USED TO DILUTE EPIRUBICIN HYDROCHLORIDE 140 MG
     Route: 041
     Dates: start: 20231129, end: 20231129
  4. EPIRUBICIN [Suspect]
     Active Substance: EPIRUBICIN
     Indication: Breast cancer female
     Dosage: 140 MG, ONE TIME IN ONE DAY, DILUTED WITH 0.9% SODIUM CHLORIDE 100 ML, SECOND ADJUVANT CHEMOTHERAPY
     Route: 041
     Dates: start: 20231129, end: 20231129

REACTIONS (9)
  - Myelosuppression [Recovering/Resolving]
  - White blood cell count decreased [Recovering/Resolving]
  - Neutrophil count decreased [Recovering/Resolving]
  - Red blood cell count decreased [Recovering/Resolving]
  - Haemoglobin decreased [Recovering/Resolving]
  - Platelet count decreased [Recovering/Resolving]
  - Lymphocyte count decreased [Recovering/Resolving]
  - Nausea [Recovering/Resolving]
  - Vomiting [Recovering/Resolving]

NARRATIVE: CASE EVENT DATE: 20231201
